FAERS Safety Report 20602774 (Version 9)
Quarter: 2023Q2

REPORT INFORMATION
  Report Type: Spontaneous
  Country: CA (occurrence: CA)
  Receive Date: 20220316
  Receipt Date: 20230505
  Transmission Date: 20230721
  Serious: Yes (Hospitalization, Other)
  Sender: FDA-Public Use
  Company Number: CA-PFIZER INC-202200383041

PATIENT
  Age: 68 Year
  Sex: Male

DRUGS (4)
  1. RUXIENCE [Suspect]
     Active Substance: RITUXIMAB-PVVR
     Indication: Rheumatoid arthritis
     Dosage: 1000 MG, DAY1, DAY15
     Route: 042
     Dates: start: 20200303, end: 20220331
  2. RUXIENCE [Suspect]
     Active Substance: RITUXIMAB-PVVR
     Dosage: 1000 MG, DAY1, DAY15
     Route: 042
     Dates: start: 20220303
  3. RUXIENCE [Suspect]
     Active Substance: RITUXIMAB-PVVR
     Dosage: 1000 MG, DAY1, DAY15
     Route: 042
     Dates: start: 20220331
  4. RUXIENCE [Suspect]
     Active Substance: RITUXIMAB-PVVR
     Dosage: 1000 MG, DAY1, DAY15
     Route: 042
     Dates: start: 20221003

REACTIONS (8)
  - Lung disorder [Recovering/Resolving]
  - Dyspnoea [Unknown]
  - C-reactive protein increased [Recovered/Resolved]
  - Neoplasm malignant [Unknown]
  - Bacterial infection [Recovering/Resolving]
  - Red blood cell sedimentation rate increased [Recovered/Resolved]
  - Emphysema [Not Recovered/Not Resolved]
  - Total lung capacity decreased [Not Recovered/Not Resolved]

NARRATIVE: CASE EVENT DATE: 20220101
